FAERS Safety Report 4276902-6 (Version None)
Quarter: 2004Q1

REPORT INFORMATION
  Report Type: 
  Country: None (occurrence: None)
  Receive Date: 20040120
  Receipt Date: 20040108
  Transmission Date: 20041129
  Serious: Yes (Hospitalization, Disabling)
  Sender: FDA-Public Use
  Company Number: 163-20785-03050121

PATIENT
  Age: 56 Year
  Sex: Female
  Weight: 69.8539 kg

DRUGS (14)
  1. THALOMID [Suspect]
     Indication: MULTIPLE MYELOMA
     Dosage: 100 MG, DAILY, ORAL
     Route: 048
     Dates: start: 20011101, end: 20021001
  2. DECADRON [Concomitant]
  3. NEURONTIN [Concomitant]
  4. SYNTHROID [Concomitant]
  5. MULTIPLE VITAMINS (MULTIPLE VITAMINS) [Concomitant]
  6. FLAXSEED (LINSEED OIL) [Concomitant]
  7. ACIDOPHILUS (LACTOBACILLUS ACIDOPHILUS) [Concomitant]
  8. COLACE (DOCUSATE SODIUM) [Concomitant]
  9. DARVOCET-N 100 [Concomitant]
  10. MIRALAX [Concomitant]
  11. DURAGESIC [Concomitant]
  12. ZYRTEC [Concomitant]
  13. PROTONIX [Concomitant]
  14. STOOL SOFTNER [Concomitant]

REACTIONS (20)
  - ABASIA [None]
  - BLOOD POTASSIUM DECREASED [None]
  - CARDIAC VALVE DISEASE [None]
  - CONFUSIONAL STATE [None]
  - DECREASED ACTIVITY [None]
  - DEPRESSION [None]
  - EATING DISORDER [None]
  - EMOTIONAL DISTRESS [None]
  - HEADACHE [None]
  - HYPERHIDROSIS [None]
  - INSOMNIA [None]
  - MALIGNANT NEOPLASM PROGRESSION [None]
  - METASTATIC NEOPLASM [None]
  - MITRAL VALVE PROLAPSE [None]
  - MULTIPLE MYELOMA [None]
  - NEUROPATHY [None]
  - SPINAL CORD NEOPLASM [None]
  - SPLENIC CYST [None]
  - THROMBOSIS [None]
  - VIRAL INFECTION [None]
